FAERS Safety Report 14548051 (Version 3)
Quarter: 2018Q1

REPORT INFORMATION
  Report Type: Spontaneous
  Country: TR (occurrence: TR)
  Receive Date: 20180219
  Receipt Date: 20180219
  Transmission Date: 20180509
  Serious: Yes (Hospitalization)
  Sender: FDA-Public Use
  Company Number: PHHY2018TR022534

PATIENT
  Age: 48 Year
  Sex: Male

DRUGS (7)
  1. TACROLIMUS. [Interacting]
     Active Substance: TACROLIMUS
     Indication: RENAL TRANSPLANT
     Dosage: 2.5 MG, QD
     Route: 065
  2. DASABUVIR [Suspect]
     Active Substance: DASABUVIR
     Indication: HEPATITIS C
     Dosage: 250 MG, BID
     Route: 065
  3. PREDNISOLONE. [Suspect]
     Active Substance: PREDNISOLONE
     Indication: RENAL TRANSPLANT
     Dosage: 10 MG, QD
     Route: 065
  4. VERAPAMIL [Interacting]
     Active Substance: VERAPAMIL HYDROCHLORIDE
     Indication: RENAL TRANSPLANT
     Dosage: 120 MG, QD
     Route: 065
  5. TACROLIMUS. [Interacting]
     Active Substance: TACROLIMUS
     Dosage: 1 MG QD
     Route: 065
  6. OMBITASVIR [Suspect]
     Active Substance: OMBITASVIR
     Indication: HEPATITIS C
     Dosage: 12.5 MG OF OMBITASVIR/75MG OF PARITAPREVIR/50MG OF RITONAVIR
     Route: 065
  7. MYCOPHENOLATE MOFETIL. [Interacting]
     Active Substance: MYCOPHENOLATE MOFETIL
     Indication: RENAL TRANSPLANT
     Dosage: 1000 MG, QD
     Route: 065

REACTIONS (10)
  - Hyperglycaemia [Unknown]
  - Neuropathy peripheral [Unknown]
  - Drug interaction [Unknown]
  - Acute kidney injury [Unknown]
  - Vomiting [Unknown]
  - Hypoaesthesia [Unknown]
  - Headache [Unknown]
  - Hyperkalaemia [Unknown]
  - Nausea [Unknown]
  - Asthenia [Unknown]
